FAERS Safety Report 9940443 (Version 1)
Quarter: 2014Q1

REPORT INFORMATION
  Report Type: Spontaneous
  Country: GB (occurrence: GB)
  Receive Date: 20140303
  Receipt Date: 20140303
  Transmission Date: 20141002
  Serious: Yes (Other)
  Sender: FDA-Public Use
  Company Number: GB-009507513-1403GBR000345

PATIENT
  Age: 67 Year
  Sex: Male
  Weight: 104.5 kg

DRUGS (13)
  1. SITAGLIPTIN PHOSPHATE [Suspect]
     Indication: TYPE 2 DIABETES MELLITUS
     Dosage: 100 MG, UNK
     Route: 048
     Dates: start: 20140106
  2. EPLERENONE [Interacting]
     Indication: CARDIAC FAILURE CONGESTIVE
     Dosage: 25 MG, UNK
     Route: 048
  3. ALLOPURINOL [Concomitant]
     Dosage: 100 MG, UNK
  4. CALCITRIOL [Concomitant]
     Dosage: 250 MICROGRAM, UNK
     Route: 048
  5. DIGOXIN [Concomitant]
     Indication: CARDIAC FAILURE CONGESTIVE
     Dosage: 62.5 MICROGRAM, UNK
     Route: 048
  6. FUROSEMIDE [Concomitant]
     Indication: CARDIAC FAILURE CONGESTIVE
     Dosage: 80 MG, UNK
     Route: 048
  7. GLICLAZIDE [Concomitant]
     Dosage: 160 MG, BID
  8. METFORMIN [Concomitant]
     Dosage: 500 MG, BID
  9. NEBIVOLOL [Concomitant]
     Indication: CARDIAC FAILURE CONGESTIVE
     Dosage: 5 MG, UNK
     Route: 048
  10. OMEPRAZOLE [Concomitant]
     Dosage: 20 MG, BID
     Route: 048
  11. RAMIPRIL [Concomitant]
     Indication: CARDIAC FAILURE CONGESTIVE
     Dosage: 1.25 MG, UNK
     Route: 048
  12. SIMVASTATIN [Concomitant]
     Dosage: 40 MG, UNK
     Route: 048
  13. TEMAZEPAM [Concomitant]
     Dosage: 10 MG, UNK

REACTIONS (6)
  - Breast induration [Not Recovered/Not Resolved]
  - Breast pain [Not Recovered/Not Resolved]
  - Breast swelling [Not Recovered/Not Resolved]
  - Breast tenderness [Not Recovered/Not Resolved]
  - Potentiating drug interaction [Unknown]
  - Erythema [Not Recovered/Not Resolved]
